FAERS Safety Report 5986990-4 (Version None)
Quarter: 2008Q4

REPORT INFORMATION
  Report Type: 
  Country: None (occurrence: None)
  Receive Date: 20081209
  Receipt Date: 20081201
  Transmission Date: 20090506
  Serious: Yes (Other)
  Sender: FDA-Public Use
  Company Number: A0756853B

PATIENT
  Sex: Female
  Weight: 76.1 kg

DRUGS (5)
  1. LAPATINIB [Suspect]
     Indication: BREAST CANCER
     Dosage: 1000MG PER DAY
     Route: 048
  2. DOXORUBICIN [Suspect]
     Indication: BREAST CANCER
     Dosage: 60MGM2 CYCLIC
     Route: 042
  3. CYCLOPHOSPHAMIDE [Suspect]
     Indication: BREAST CANCER
     Dosage: 600MGM2 CYCLIC
     Route: 042
  4. TRASTUZUMAB [Suspect]
     Indication: BREAST CANCER
     Route: 042
  5. PACLITAXEL [Suspect]
     Indication: BREAST CANCER
     Dosage: 50MGM2 CYCLIC
     Route: 042

REACTIONS (2)
  - NEUTROPENIA [None]
  - WHITE BLOOD CELL COUNT DECREASED [None]
